FAERS Safety Report 21600056 (Version 1)
Quarter: 2022Q4

REPORT INFORMATION
  Report Type: Spontaneous
  Country: GB (occurrence: GB)
  Receive Date: 20221116
  Receipt Date: 20221116
  Transmission Date: 20230113
  Serious: Yes (Other)
  Sender: FDA-Public Use
  Company Number: GB-BEH-2022152037

PATIENT

DRUGS (6)
  1. IDELVION [Suspect]
     Active Substance: COAGULATION FACTOR IX RECOMBINANT HUMAN
     Indication: Haemophilia
     Dosage: 2500 INTERNATIONAL UNIT, QOW
     Route: 065
     Dates: start: 201612
  2. IDELVION [Suspect]
     Active Substance: COAGULATION FACTOR IX RECOMBINANT HUMAN
     Indication: Haemophilia
     Dosage: 2500 INTERNATIONAL UNIT, QOW
     Route: 065
     Dates: start: 201612
  3. IDELVION [Suspect]
     Active Substance: COAGULATION FACTOR IX RECOMBINANT HUMAN
     Indication: Prophylaxis
     Dosage: 2500 INTERNATIONAL UNIT, QOW
     Route: 065
     Dates: start: 201702
  4. IDELVION [Suspect]
     Active Substance: COAGULATION FACTOR IX RECOMBINANT HUMAN
     Indication: Prophylaxis
     Dosage: 2500 INTERNATIONAL UNIT, QOW
     Route: 065
     Dates: start: 201702
  5. IDELVION [Suspect]
     Active Substance: COAGULATION FACTOR IX RECOMBINANT HUMAN
     Dosage: 2500 INTERNATIONAL UNIT EVERY 3 WEEKS
     Route: 065
     Dates: start: 202009
  6. IDELVION [Suspect]
     Active Substance: COAGULATION FACTOR IX RECOMBINANT HUMAN
     Dosage: 2500 INTERNATIONAL UNIT EVERY 3 WEEKS
     Route: 065
     Dates: start: 202009

REACTIONS (6)
  - Haemorrhage [Unknown]
  - Haemorrhage [Unknown]
  - Pain [Unknown]
  - Haemarthrosis [Unknown]
  - Haematuria [Unknown]
  - Urinary tract infection [Unknown]
